FAERS Safety Report 20879622 (Version 2)
Quarter: 2022Q2

REPORT INFORMATION
  Report Type: Spontaneous
  Country: US (occurrence: US)
  Receive Date: 20220526
  Receipt Date: 20220611
  Transmission Date: 20220720
  Serious: Yes (Death, Hospitalization)
  Sender: FDA-Public Use
  Company Number: US-TEVA-2022-US-2039429

PATIENT
  Age: 56 Year
  Sex: Male

DRUGS (11)
  1. METHYLPREDNISOLONE [Suspect]
     Active Substance: METHYLPREDNISOLONE
     Indication: COVID-19
     Dosage: ON DAY 2, 125 MG
     Route: 042
  2. HYDROCORTISONE [Suspect]
     Active Substance: HYDROCORTISONE
     Indication: COVID-19
     Dosage: DOSE RANGING FROM 400 MG TO 50 MG A DAY
     Route: 065
  3. DEXAMETHASONE [Suspect]
     Active Substance: DEXAMETHASONE
     Indication: COVID-19
     Dosage: ON DAY 1 6 MG
     Route: 048
  4. REMDESIVIR [Concomitant]
     Active Substance: REMDESIVIR
     Indication: COVID-19
     Dosage: ON DAY 1, 200 MG
     Route: 042
  5. REMDESIVIR [Concomitant]
     Active Substance: REMDESIVIR
     Dosage: ON DAY 2 100 MG
     Route: 042
  6. PIPERACILLIN SODIUM\TAZOBACTAM SODIUM [Concomitant]
     Active Substance: PIPERACILLIN SODIUM\TAZOBACTAM SODIUM
     Indication: Klebsiella infection
     Dosage: 4.5 GRAM
     Route: 050
  7. PIPERACILLIN SODIUM\TAZOBACTAM SODIUM [Concomitant]
     Active Substance: PIPERACILLIN SODIUM\TAZOBACTAM SODIUM
     Dosage: 3.375 G EVERY 8 HOURS AS AN EXTENDED INFUSION OVER 4 HOURS
     Route: 050
  8. CEFEPIME [Concomitant]
     Active Substance: CEFEPIME HYDROCHLORIDE
     Indication: Klebsiella infection
     Dosage: 4 GRAM DAILY;
     Route: 065
  9. MEROPENEM [Concomitant]
     Active Substance: MEROPENEM
     Indication: Leukocytosis
     Dosage: 3 GRAM DAILY;
     Route: 065
  10. AVIBACTAM SODIUM\CEFTAZIDIME [Concomitant]
     Active Substance: AVIBACTAM SODIUM\CEFTAZIDIME
     Indication: Klebsiella infection
     Dosage: 7.5 GRAM DAILY;
     Route: 065
  11. MICAFUNGIN [Concomitant]
     Active Substance: MICAFUNGIN
     Indication: Fungal infection
     Dosage: 150 MILLIGRAM DAILY;
     Route: 065

REACTIONS (5)
  - Disseminated cryptococcosis [Fatal]
  - Retroperitoneal haematoma [Unknown]
  - Blood loss anaemia [Unknown]
  - Multiple organ dysfunction syndrome [Unknown]
  - Off label use [Unknown]
